FAERS Safety Report 5530001-1 (Version None)
Quarter: 2007Q4

REPORT INFORMATION
  Report Type: 
  Country: None (occurrence: None)
  Receive Date: 20071127
  Receipt Date: 20071113
  Transmission Date: 20080405
  Serious: Yes (Hospitalization)
  Sender: FDA-Public Use
  Company Number: GXKR2007US09738

PATIENT
  Age: 54 Year
  Sex: Male

DRUGS (4)
  1. HEPARIN [Suspect]
     Indication: HAEMORRHOIDAL HAEMORRHAGE
     Dosage: INTRAVENOUS
     Route: 042
  2. GABAPENTIN [Suspect]
  3. PREDNISOLONE [Suspect]
     Indication: EYE INFECTION
  4. WARFARIN SODIUM [Concomitant]

REACTIONS (8)
  - ANAPHYLACTIC REACTION [None]
  - DYSPHAGIA [None]
  - EYE INFECTION [None]
  - FACIAL PAIN [None]
  - LARYNGEAL OEDEMA [None]
  - NO THERAPEUTIC RESPONSE [None]
  - PALATAL OEDEMA [None]
  - VENTRICULAR TACHYCARDIA [None]
